FAERS Safety Report 4893156-8 (Version None)
Quarter: 2005Q4

REPORT INFORMATION
  Report Type: 
  Country: None (occurrence: None)
  Receive Date: 20051223
  Receipt Date: 20051102
  Transmission Date: 20060501
  Serious: No
  Sender: FDA-Public Use
  Company Number: 219194

PATIENT
  Age: 65 Year
  Sex: Male

DRUGS (4)
  1. AVASTIN [Suspect]
     Indication: COLORECTAL CANCER METASTATIC
  2. FLUOROURACIL [Suspect]
     Indication: COLORECTAL CANCER METASTATIC
  3. LEUCOVORIN CALCIUM [Suspect]
     Indication: COLORECTAL CANCER METASTATIC
  4. OXALIPLATIN(OXALIPLATIN) [Suspect]
     Indication: COLORECTAL CANCER METASTATIC

REACTIONS (1)
  - THROMBOCYTOPENIA [None]
